FAERS Safety Report 8179271-4 (Version None)
Quarter: 2012Q1

REPORT INFORMATION
  Report Type: 
  Country: None (occurrence: None)
  Receive Date: 20120229
  Receipt Date: 20120229
  Transmission Date: 20120608
  Serious: Yes (Life-Threatening, Disabling)
  Sender: FDA-Public Use
  Company Number: None

PATIENT
  Sex: Female
  Weight: 67.586 kg

DRUGS (2)
  1. CRESTOR [Suspect]
     Indication: BLOOD CHOLESTEROL
     Dosage: 20 MG 1 DAILY
  2. ZOCOR [Suspect]
     Indication: BLOOD CHOLESTEROL
     Dosage: 80 MG 1 DAILY

REACTIONS (1)
  - ABASIA [None]
